FAERS Safety Report 7319102-5 (Version None)
Quarter: 2011Q1

REPORT INFORMATION
  Report Type: 
  Country: None (occurrence: None)
  Receive Date: 20110214
  Receipt Date: 20110201
  Transmission Date: 20110831
  Serious: Yes (Other)
  Sender: FDA-Public Use
  Company Number: 2011SP005159

PATIENT
  Age: 45 Year
  Sex: Female
  Weight: 57 kg

DRUGS (3)
  1. CERAZETTE (DESOGESTREL /00754001/) [Suspect]
     Indication: CONTRACEPTION
     Dosage: PO
     Route: 048
     Dates: start: 20100201
  2. DIAZEPAM [Concomitant]
  3. RANITIDINE [Concomitant]

REACTIONS (3)
  - OVARIAN CYST [None]
  - WEIGHT INCREASED [None]
  - UTERINE LEIOMYOMA [None]
